FAERS Safety Report 19879168 (Version 1)
Quarter: 2021Q3

REPORT INFORMATION
  Report Type: Spontaneous
  Country: IT (occurrence: IT)
  Receive Date: 20210923
  Receipt Date: 20210923
  Transmission Date: 20211014
  Serious: Yes (Life-Threatening, Other)
  Sender: FDA-Public Use
  Company Number: IT-BAXTER-2021BAX029260

PATIENT
  Age: 24 Year
  Sex: Male

DRUGS (2)
  1. CAELYX PEGYLATED LIPOSOMAL 2 MG/ML CONCENTRATE FOR SOLUTION FOR INFUSI [Suspect]
     Active Substance: DOXORUBICIN HYDROCHLORIDE
     Indication: INFLAMMATORY MYOFIBROBLASTIC TUMOUR
     Dosage: 3 CYCLES
     Route: 065
     Dates: start: 201903, end: 2019
  2. HOLOXAN [Suspect]
     Active Substance: IFOSFAMIDE
     Indication: INFLAMMATORY MYOFIBROBLASTIC TUMOUR
     Dosage: 3 CYCLES
     Route: 065
     Dates: start: 201903, end: 2019

REACTIONS (3)
  - Drug intolerance [Unknown]
  - Neutropenia [Unknown]
  - Haematotoxicity [Unknown]

NARRATIVE: CASE EVENT DATE: 2019
